FAERS Safety Report 13551573 (Version 2)
Quarter: 2017Q2

REPORT INFORMATION
  Report Type: Spontaneous
  Country: US (occurrence: US)
  Receive Date: 20170516
  Receipt Date: 20170602
  Transmission Date: 20170830
  Serious: Yes (Other)
  Sender: FDA-Public Use
  Company Number: US-ASTELLAS-2017US018555

PATIENT
  Age: 63 Year
  Sex: Male

DRUGS (1)
  1. VESICARE [Suspect]
     Active Substance: SOLIFENACIN SUCCINATE
     Indication: BLADDER DISORDER
     Dosage: UNK, UNKNOWN FREQ.
     Route: 065

REACTIONS (9)
  - Nocturia [Unknown]
  - Joint injury [Unknown]
  - Road traffic accident [Unknown]
  - Treatment noncompliance [Unknown]
  - Sciatica [Unknown]
  - Abasia [Unknown]
  - Head injury [Unknown]
  - Joint injury [Unknown]
  - Arthralgia [Unknown]

NARRATIVE: CASE EVENT DATE: 20170107
